FAERS Safety Report 7941967-4 (Version None)
Quarter: 2011Q4

REPORT INFORMATION
  Report Type: 
  Country: None (occurrence: None)
  Receive Date: 20111122
  Receipt Date: 20111108
  Transmission Date: 20120403
  Serious: Yes (Hospitalization)
  Sender: FDA-Public Use
  Company Number: AXC-2011-000437

PATIENT
  Age: 80 Year
  Sex: Male

DRUGS (19)
  1. URSODEOXYCHOLIC ACID (URSODEOXYCHOLIC ACID) TABLET, 50MG [Suspect]
     Indication: CHOLELITHIASIS
     Dosage: 200 MG, QD, ORAL
     Route: 048
     Dates: end: 20110825
  2. MUCOSTA (REBAMIPIDE) [Concomitant]
  3. ALLOPURINOL [Suspect]
     Indication: PAIN
     Dosage: 100 MG, QD, ORAL
     Route: 048
     Dates: start: 20110826, end: 20110926
  4. VIBRAMYCIN /00055701/ (DOXYCYCLINE) [Concomitant]
  5. ADETPHOS (ADENOSINE TRIPHOSPHATE, DISODIUM SALT) [Concomitant]
  6. TRINOSIN (ADENOSINE TRIPHOSPHATE, DISODIUM SALT) [Concomitant]
  7. DILTIAZEM HYDROCHLORIDE [Concomitant]
  8. MAGLAX (MAGNESIUM OXIDE) [Concomitant]
  9. DIAZEPAM [Concomitant]
  10. LEVOFLOXACIN [Suspect]
     Indication: PRODUCT USED FOR UNKNOWN INDICATION
     Dosage: 500 MG, QD, ORAL
     Route: 048
     Dates: end: 20110825
  11. LOXONIN /00890702/ (LOXOPROFEN SODIUM) [Concomitant]
  12. TAMSULOSIN HYDROCHLORIDE [Concomitant]
  13. TRINOSIN (ADENOSINE TRIPHOSPHATE, DISODIUM SALT) [Concomitant]
  14. FORSENID /00571901/ (SENNOSIDE A+B) [Concomitant]
  15. DIAZEPAM [Concomitant]
  16. ASPIRIN [Concomitant]
  17. BLOPRESS (CANDESARTAN CILEXETIL) [Concomitant]
  18. LANSOPRAZOLE [Concomitant]
  19. MERISLON /00141802/ (BETAHISTINE HYDROCHLORIDE) [Concomitant]

REACTIONS (7)
  - CARDIAC MURMUR [None]
  - NIGHT SWEATS [None]
  - PYREXIA [None]
  - PRODUCTIVE COUGH [None]
  - BACTERIAL TEST POSITIVE [None]
  - DYSPNOEA [None]
  - INTERSTITIAL LUNG DISEASE [None]
